FAERS Safety Report 9305410 (Version 2)
Quarter: 2013Q3

REPORT INFORMATION
  Report Type: Spontaneous
  Country: US (occurrence: US)
  Receive Date: 20130523
  Receipt Date: 20130712
  Transmission Date: 20140515
  Serious: Yes (Other)
  Sender: FDA-Public Use
  Company Number: US-BRISTOL-MYERS SQUIBB COMPANY-18901397

PATIENT
  Age: 69 Year
  Sex: Male

DRUGS (2)
  1. ABILIFY [Suspect]
     Indication: DEPRESSION
     Dosage: DOSE REDUCED TO 2MG/DAY THEN STOPPED
     Route: 048
  2. EFFEXOR [Suspect]
     Indication: DEPRESSION

REACTIONS (1)
  - Mania [Recovering/Resolving]
